FAERS Safety Report 5823733-9 (Version None)
Quarter: 2008Q3

REPORT INFORMATION
  Report Type: 
  Country: None (occurrence: None)
  Receive Date: 20080725
  Receipt Date: 20080715
  Transmission Date: 20090109
  Serious: Yes (Other)
  Sender: FDA-Public Use
  Company Number: CH-PFIZER INC-2008056178

PATIENT
  Sex: Male
  Weight: 70 kg

DRUGS (1)
  1. ZOLOFT [Suspect]
     Indication: DEPRESSION
     Route: 048

REACTIONS (7)
  - ABNORMAL SENSATION IN EYE [None]
  - DEPRESSION [None]
  - DIZZINESS [None]
  - INCREASED APPETITE [None]
  - NAUSEA [None]
  - TINNITUS [None]
  - WEIGHT INCREASED [None]
